FAERS Safety Report 24715713 (Version 1)
Quarter: 2024Q4

REPORT INFORMATION
  Report Type: Spontaneous
  Country: US (occurrence: US)
  Receive Date: 20241210
  Receipt Date: 20241210
  Transmission Date: 20250114
  Serious: No
  Sender: AMNEAL
  Company Number: US-AMNEAL PHARMACEUTICALS-2024-AMRX-00139

PATIENT
  Sex: Female

DRUGS (9)
  1. BACLOFEN [Suspect]
     Active Substance: BACLOFEN
     Indication: Pain
     Dosage: UNK
     Route: 065
  2. REMODULIN [Concomitant]
     Active Substance: TREPROSTINIL
     Indication: Pulmonary arterial hypertension
     Dosage: CONCENTRATION 5.0 MG/ML, 0.0237 ?G/KG
     Route: 058
     Dates: start: 202312
  3. REMODULIN [Concomitant]
     Active Substance: TREPROSTINIL
     Dosage: 0.02407 ?G/KG,
     Route: 058
     Dates: start: 202312
  4. REMODULIN [Concomitant]
     Active Substance: TREPROSTINIL
     Dosage: 0.02607 ?G/KG,
     Route: 058
     Dates: start: 202312
  5. REMODULIN [Concomitant]
     Active Substance: TREPROSTINIL
     Dosage: 0.02908 ?G/KG
     Route: 058
     Dates: start: 202312
  6. REMODULIN [Concomitant]
     Active Substance: TREPROSTINIL
     Dosage: UNK
     Route: 058
     Dates: start: 202312
  7. OPSUMIT [Concomitant]
     Active Substance: MACITENTAN
     Indication: Product used for unknown indication
     Dosage: UNK
     Route: 065
  8. REVATIO [Concomitant]
     Active Substance: SILDENAFIL CITRATE
     Indication: Product used for unknown indication
     Dosage: UNK
     Route: 065
  9. UPTRAVI [Concomitant]
     Active Substance: SELEXIPAG
     Indication: Product used for unknown indication
     Dosage: UNK
     Route: 065

REACTIONS (1)
  - Therapy non-responder [Unknown]
